FAERS Safety Report 8581411-X (Version None)
Quarter: 2012Q3

REPORT INFORMATION
  Report Type: 
  Country: None (occurrence: None)
  Receive Date: 20120809
  Receipt Date: 20120730
  Transmission Date: 20120928
  Serious: Yes (Death, Hospitalization)
  Sender: FDA-Public Use
  Company Number: US-SANOFI-AVENTIS-2012SA054964

PATIENT
  Age: 43 Year
  Sex: Male
  Weight: 127.27 kg

DRUGS (3)
  1. XARELTO [Suspect]
     Indication: THROMBOSIS PROPHYLAXIS
     Route: 048
     Dates: start: 20120601
  2. XARELTO [Suspect]
     Indication: KNEE ARTHROPLASTY
     Route: 048
     Dates: start: 20120601
  3. LOVENOX [Suspect]
     Route: 058
     Dates: start: 20120601

REACTIONS (2)
  - DYSPNOEA [None]
  - DEATH [None]
